FAERS Safety Report 10815357 (Version 1)
Quarter: 2015Q1

REPORT INFORMATION
  Report Type: Spontaneous
  Country: AT (occurrence: AT)
  Receive Date: 20150218
  Receipt Date: 20150218
  Transmission Date: 20150721
  Serious: Yes (Death, Other)
  Sender: FDA-Public Use
  Company Number: PHHY2015AT018541

PATIENT
  Sex: Female

DRUGS (3)
  1. AFINITOR [Suspect]
     Active Substance: EVEROLIMUS
     Dosage: UNK
     Route: 065
  2. AFINITOR [Suspect]
     Active Substance: EVEROLIMUS
     Indication: BREAST CANCER
     Dosage: 10 MG, QD
     Route: 065
  3. EXEMESTAN [Suspect]
     Active Substance: EXEMESTANE
     Indication: BREAST CANCER
     Route: 065

REACTIONS (8)
  - Death [Fatal]
  - Diabetes mellitus [Unknown]
  - Weight decreased [Unknown]
  - Dysgeusia [Unknown]
  - Stomatitis [Unknown]
  - Metastases to central nervous system [Unknown]
  - Blood glucose increased [Not Recovered/Not Resolved]
  - Malignant neoplasm progression [Unknown]
